FAERS Safety Report 12639273 (Version 2)
Quarter: 2017Q4

REPORT INFORMATION
  Report Type: Report from Study
  Country: US (occurrence: US)
  Receive Date: 20160810
  Receipt Date: 20171102
  Transmission Date: 20180320
  Serious: Yes (Hospitalization)
  Sender: FDA-Public Use
  Company Number: US-ACTELION-A-US2016-140178

PATIENT
  Age: 80 Year
  Sex: Female

DRUGS (13)
  1. OPSUMIT [Suspect]
     Active Substance: MACITENTAN
     Indication: PULMONARY ARTERIAL HYPERTENSION
     Dosage: 10 MG, QD
     Route: 048
     Dates: start: 20160506
  2. SPIRONOLACTONE. [Concomitant]
     Active Substance: SPIRONOLACTONE
  3. PRILOSEC [Concomitant]
     Active Substance: OMEPRAZOLE MAGNESIUM
  4. ACIPHEX [Concomitant]
     Active Substance: RABEPRAZOLE SODIUM
  5. IRON [Concomitant]
     Active Substance: IRON
  6. FORTEO [Concomitant]
     Active Substance: TERIPARATIDE
  7. LANOXIN [Concomitant]
     Active Substance: DIGOXIN
  8. DILTIAZEM. [Concomitant]
     Active Substance: DILTIAZEM
  9. FUROSEMIDE. [Concomitant]
     Active Substance: FUROSEMIDE
  10. ADCIRCA [Concomitant]
     Active Substance: TADALAFIL
  11. POTASSIUM CHLORIDE. [Concomitant]
     Active Substance: POTASSIUM CHLORIDE
  12. METOPROLOL. [Concomitant]
     Active Substance: METOPROLOL
  13. LEXAPRO [Concomitant]
     Active Substance: ESCITALOPRAM OXALATE

REACTIONS (4)
  - Gastrointestinal haemorrhage [Unknown]
  - Transfusion [Unknown]
  - Anaemia [Unknown]
  - Haemorrhage [Unknown]

NARRATIVE: CASE EVENT DATE: 201607
